FAERS Safety Report 7720471-2 (Version None)
Quarter: 2011Q3

REPORT INFORMATION
  Report Type: 
  Country: None (occurrence: None)
  Receive Date: 20110831
  Receipt Date: 20110503
  Transmission Date: 20111222
  Serious: No
  Sender: FDA-Public Use
  Company Number: US-KINGPHARMUSA00001-K201100548

PATIENT
  Sex: Female
  Weight: 99.773 kg

DRUGS (11)
  1. DEPAKOTE [Concomitant]
     Dosage: 500 MG, BID
     Route: 048
  2. FISH OIL [Concomitant]
     Dosage: 1200 MG, QD
     Route: 048
  3. SIMAVASTATIN [Concomitant]
     Dosage: 20 MG, QD
     Route: 048
  4. ASPIRIN [Concomitant]
     Dosage: 81 MG, QD
     Route: 048
  5. COQ10 [Concomitant]
     Dosage: 300 MG, QD
     Route: 048
  6. OSTEO BI-FLEX [Concomitant]
     Dosage: 2 CAPSULES ONCE DAILY
     Route: 048
  7. CALCIUM D [Concomitant]
     Dosage: 500 MG, QD
     Route: 048
  8. LOXIN [Concomitant]
     Dosage: 2 DF, QD
  9. PENICILLIN G PROCAINE [Suspect]
     Dosage: UNK
  10. DITROPAN [Concomitant]
     Indication: URINARY INCONTINENCE
     Dosage: 10 MG, ONCE DAILY AS NEEDED
     Route: 048
  11. CENTRUM SILVER [Concomitant]
     Dosage: ONE TABLET ONCE
     Route: 048

REACTIONS (1)
  - DRUG HYPERSENSITIVITY [None]
